FAERS Safety Report 9493434 (Version 1)
Quarter: 2013Q3

REPORT INFORMATION
  Report Type: Spontaneous
  Country: US (occurrence: US)
  Receive Date: 20130902
  Receipt Date: 20130902
  Transmission Date: 20140515
  Serious: Yes (Death)
  Sender: FDA-Public Use
  Company Number: US-PFIZER INC-2013250402

PATIENT
  Age: 62 Year
  Sex: Male

DRUGS (1)
  1. RAPAMUNE [Suspect]
     Indication: LUNG TRANSPLANT
     Dosage: 1 MG, 2X/DAY

REACTIONS (2)
  - Metastatic malignant melanoma [Fatal]
  - Off label use [Unknown]
